FAERS Safety Report 12569945 (Version 1)
Quarter: 2016Q3

REPORT INFORMATION
  Report Type: Spontaneous
  Country: US (occurrence: US)
  Receive Date: 20160719
  Receipt Date: 20160719
  Transmission Date: 20161109
  Serious: No
  Sender: FDA-Public Use
  Company Number: US-BEH-2016070851

PATIENT
  Sex: Male
  Weight: 24.49 kg

DRUGS (25)
  1. ACETAMINOPHEN. [Concomitant]
     Active Substance: ACETAMINOPHEN
  2. DIPHENHYDRAMINE. [Concomitant]
     Active Substance: DIPHENHYDRAMINE
  3. RANITIDINE HCL [Concomitant]
     Active Substance: RANITIDINE HYDROCHLORIDE
  4. IPRATROPIUM [Concomitant]
     Active Substance: IPRATROPIUM
  5. ATROVENT HFA [Concomitant]
     Active Substance: IPRATROPIUM BROMIDE
  6. SODIUM CHLORIDE. [Concomitant]
     Active Substance: SODIUM CHLORIDE
  7. PROBIOTIC                          /06395501/ [Concomitant]
     Active Substance: BIFIDOBACTERIUM ANIMALIS SUBSP. LACTIS
  8. EPIPEN JR [Concomitant]
     Active Substance: EPINEPHRINE
  9. UREA. [Concomitant]
     Active Substance: UREA
  10. BETHANECHOL CHLORIDE. [Concomitant]
     Active Substance: BETHANECHOL CHLORIDE
  11. XOPENEX HFA [Concomitant]
     Active Substance: LEVALBUTEROL TARTRATE
  12. HIZENTRA [Suspect]
     Active Substance: HUMAN IMMUNOGLOBULIN G
     Indication: ASTHMA
     Dosage: 4 G, QW
     Route: 058
  13. BENZOYL PEROXIDE W/CLINDAMYCIN [Concomitant]
  14. ACETYLCYSTEINE. [Concomitant]
     Active Substance: ACETYLCYSTEINE
  15. HIZENTRA [Suspect]
     Active Substance: HUMAN IMMUNOGLOBULIN G
     Indication: SLEEP APNOEA SYNDROME
  16. DESONIDE. [Concomitant]
     Active Substance: DESONIDE
  17. ARTIFICIAL TEARS                   /00445101/ [Concomitant]
  18. ERYTHROMYCIN ETHYLSUCCINATE. [Concomitant]
     Active Substance: ERYTHROMYCIN ETHYLSUCCINATE
  19. QVAR [Concomitant]
     Active Substance: BECLOMETHASONE DIPROPIONATE
  20. LACTULOSE. [Concomitant]
     Active Substance: LACTULOSE
  21. NEXIUM [Concomitant]
     Active Substance: ESOMEPRAZOLE MAGNESIUM
  22. HYDROCORTISONE ACETATE. [Concomitant]
     Active Substance: HYDROCORTISONE ACETATE
  23. CETIRIZ [Concomitant]
  24. MUPIROCIN. [Concomitant]
     Active Substance: MUPIROCIN
  25. TRETINOIN. [Concomitant]
     Active Substance: TRETINOIN

REACTIONS (1)
  - Administration site bruise [Unknown]
